FAERS Safety Report 9751356 (Version 1)
Quarter: 2013Q4

REPORT INFORMATION
  Report Type: Spontaneous
  Country: US (occurrence: US)
  Receive Date: 20131212
  Receipt Date: 20131212
  Transmission Date: 20140711
  Serious: No
  Sender: FDA-Public Use
  Company Number: US-BIOGENIDEC-2013BI095038

PATIENT
  Age: 71 Year
  Sex: Female

DRUGS (10)
  1. TECFIDERA [Suspect]
     Indication: MULTIPLE SCLEROSIS
     Route: 048
     Dates: start: 20130904, end: 20130923
  2. AMARYL [Concomitant]
  3. CYMBALTA [Concomitant]
  4. CENTRUM MULTIVITAMIN [Concomitant]
  5. LIPITOR [Concomitant]
  6. IMURER (NOS) [Concomitant]
  7. LATANOPROST EYE DROP [Concomitant]
  8. ACTOS [Concomitant]
  9. DEXILANT DR [Concomitant]
  10. CALCITRATE PLUS [Concomitant]

REACTIONS (7)
  - Abdominal distension [Unknown]
  - Pain [Unknown]
  - Eructation [Unknown]
  - Dyspepsia [Unknown]
  - Vomiting [Unknown]
  - Feeling hot [Unknown]
  - Nausea [Unknown]
